FAERS Safety Report 8041149-4 (Version None)
Quarter: 2012Q1

REPORT INFORMATION
  Report Type: 
  Country: None (occurrence: None)
  Receive Date: 20120109
  Receipt Date: 20111227
  Transmission Date: 20120608
  Serious: Yes (Other)
  Sender: FDA-Public Use
  Company Number: 2011P1015552

PATIENT
  Age: 52 Year
  Sex: Male

DRUGS (5)
  1. PHENYTOIN [Suspect]
     Dosage: ITVN
  2. PIPERACILLIN [Concomitant]
  3. PHENYTOIN [Suspect]
     Dosage: 250 MG;X1 ; PO
     Route: 048
  4. GENTAMICIN [Concomitant]
  5. METRONIDAZOLE [Concomitant]

REACTIONS (7)
  - TACHYCARDIA [None]
  - DRUG ADMINISTRATION ERROR [None]
  - HYPERTENSION [None]
  - HYPERTONIA [None]
  - CONVULSION [None]
  - TREMOR [None]
  - COGNITIVE DISORDER [None]
